FAERS Safety Report 4644677-4 (Version None)
Quarter: 2005Q2

REPORT INFORMATION
  Report Type: 
  Country: None (occurrence: None)
  Receive Date: 20050425
  Receipt Date: 20050425
  Transmission Date: 20051028
  Serious: Yes (Hospitalization)
  Sender: FDA-Public Use
  Company Number: None

PATIENT
  Age: 35 Year
  Sex: Male
  Weight: 90 kg

DRUGS (2)
  1. NORPACE [Suspect]
     Indication: ATRIAL FIBRILLATION
     Dosage: 200 MG  QID  ORAL
     Route: 048
     Dates: start: 20050408, end: 20050408
  2. VERAPAMIL [Concomitant]

REACTIONS (7)
  - ABDOMINAL PAIN [None]
  - ANAPHYLACTIC REACTION [None]
  - BLOOD PRESSURE DECREASED [None]
  - HYPERHIDROSIS [None]
  - HYPOXIA [None]
  - RESPIRATORY RATE INCREASED [None]
  - VOMITING [None]
